FAERS Safety Report 7599439-5 (Version None)
Quarter: 2011Q3

REPORT INFORMATION
  Report Type: 
  Country: None (occurrence: None)
  Receive Date: 20110711
  Receipt Date: 20110628
  Transmission Date: 20111222
  Serious: Yes (Other)
  Sender: FDA-Public Use
  Company Number: US-BAYER-2011-056656

PATIENT
  Age: 24 Year
  Sex: Female

DRUGS (1)
  1. MIRENA [Suspect]
     Indication: CONTRACEPTION
     Dosage: UNK
     Route: 015
     Dates: start: 20110114, end: 20110114

REACTIONS (7)
  - POST PROCEDURAL HAEMORRHAGE [None]
  - VOMITING [None]
  - PROCEDURAL PAIN [None]
  - DIARRHOEA [None]
  - CERVICITIS [None]
  - ABDOMINAL PAIN [None]
  - NAUSEA [None]
